FAERS Safety Report 4989827-5 (Version None)
Quarter: 2006Q2

REPORT INFORMATION
  Report Type: 
  Country: None (occurrence: None)
  Receive Date: 20060501
  Receipt Date: 20060425
  Transmission Date: 20061013
  Serious: Yes (Other)
  Sender: FDA-Public Use
  Company Number: HQWYE990325APR06

PATIENT
  Age: 80 Year
  Sex: Female

DRUGS (1)
  1. AMIODARONE [Suspect]
     Indication: ARRHYTHMIA

REACTIONS (5)
  - DRUG TOXICITY [None]
  - KERATITIS [None]
  - KERATOPATHY [None]
  - MACULAR DEGENERATION [None]
  - MACULOPATHY [None]
